FAERS Safety Report 9552368 (Version 2)
Quarter: 2013Q3

REPORT INFORMATION
  Report Type: Report from Study
  Country: FR (occurrence: FR)
  Receive Date: 20130925
  Receipt Date: 20130925
  Transmission Date: 20140515
  Serious: Yes (Life-Threatening, Hospitalization, Other)
  Sender: FDA-Public Use
  Company Number: FR-ASTELLAS-2013EU006004

PATIENT
  Age: 64 Year
  Sex: Male
  Weight: 78 kg

DRUGS (6)
  1. TACROLIMUS MR4 CAPSULES [Suspect]
     Indication: RENAL TRANSPLANT
     Dosage: 12 MG, UNKNOWN/D
     Route: 065
     Dates: start: 20120425
  2. TACROLIMUS MR4 CAPSULES [Suspect]
     Dosage: 15 MG, UNKNOWN/D
     Route: 065
  3. CORTICOSTEROID NOS [Suspect]
     Indication: RENAL TRANSPLANT
     Dosage: UNK
     Route: 065
  4. CORTICOSTEROID NOS [Suspect]
     Dosage: 15 MG, UID/QD
     Route: 065
  5. CORTICOSTEROID NOS [Suspect]
     Dosage: 20 MG, UID/QD
     Route: 065
  6. NEORAL [Suspect]
     Indication: RENAL TRANSPLANT
     Dosage: UNK
     Route: 065

REACTIONS (8)
  - Drug ineffective [Recovered/Resolved]
  - Renal failure acute [Not Recovered/Not Resolved]
  - Hypovolaemic shock [Recovered/Resolved]
  - Transplant rejection [Unknown]
  - Cytomegalovirus infection [Recovered/Resolved]
  - Sepsis [Recovered/Resolved]
  - Diarrhoea [Recovered/Resolved]
  - Anaemia [Not Recovered/Not Resolved]
